FAERS Safety Report 5313563-9 (Version None)
Quarter: 2007Q2

REPORT INFORMATION
  Report Type: 
  Country: None (occurrence: None)
  Receive Date: 20070424
  Receipt Date: 20070410
  Transmission Date: 20071010
  Serious: Yes (Other)
  Sender: FDA-Public Use
  Company Number: 155431USA

PATIENT
  Age: 47 Year
  Sex: Female

DRUGS (2)
  1. NOVO-TAMOXIFEN TABLETS, 20 MG (TAMOXIFEN) [Suspect]
     Indication: BREAST CANCER
     Dosage: 20 MG (20 MG, 1 IN 1 D) ORAL
     Route: 048
     Dates: start: 20070129
  2. LEVOTHYROXINE SODIUM [Suspect]
     Indication: HYPOTHYROIDISM
     Dosage: 50 MCG (50 MCG, 1 IN 1 D) ORAL
     Route: 048
     Dates: start: 20020101, end: 20070315

REACTIONS (2)
  - DRUG INTERACTION [None]
  - HYPERTHYROIDISM [None]
